FAERS Safety Report 14293701 (Version 1)
Quarter: 2017Q4

REPORT INFORMATION
  Report Type: Spontaneous
  Country: US (occurrence: US)
  Receive Date: 20171216
  Receipt Date: 20171216
  Transmission Date: 20180321
  Serious: No
  Sender: FDA-Public Use
  Company Number: US-GLENMARK PHARMACEUTICALS-2017GMK028196

PATIENT

DRUGS (1)
  1. CICLOPIROX OLAMINE CREAM [Suspect]
     Active Substance: CICLOPIROX OLAMINE
     Indication: PRODUCT USED FOR UNKNOWN INDICATION
     Dosage: UNK
     Route: 065

REACTIONS (4)
  - Expired product administered [Unknown]
  - Therapeutic response unexpected [Unknown]
  - No adverse event [Unknown]
  - Product packaging quantity issue [Unknown]
